FAERS Safety Report 4994005-X (Version None)
Quarter: 2006Q2

REPORT INFORMATION
  Report Type: 
  Country: None (occurrence: None)
  Receive Date: 20060503
  Receipt Date: 20060424
  Transmission Date: 20061013
  Serious: Yes (Life-Threatening, Hospitalization)
  Sender: FDA-Public Use
  Company Number: GXKR2006NL02060

PATIENT
  Age: 66 Year
  Sex: Male

DRUGS (8)
  1. CIPROFLOXACIN [Suspect]
     Indication: PROPHYLAXIS
  2. CO-TRIMOXAZOLE (NGX)(SULFAMETHOXAZOLE, TRIMETHOPRIM) [Suspect]
  3. MELPHALAN(MELPHALAN) [Suspect]
     Dosage: 100 MG/M2
  4. PENICILLIN [Suspect]
     Indication: PROPHYLAXIS
  5. AMPHOTERICIN B [Suspect]
     Indication: PROPHYLAXIS
  6. VANCOMYCIN [Concomitant]
  7. CEFTAZIDIME (CEFTAZIDIME) [Concomitant]
  8. VORICONAZOLE (VORICONAZOLE) [Concomitant]

REACTIONS (5)
  - ACUTE RESPIRATORY DISTRESS SYNDROME [None]
  - CLOSTRIDIUM COLITIS [None]
  - DISSEMINATED INTRAVASCULAR COAGULATION [None]
  - FEBRILE NEUTROPENIA [None]
  - SEPTIC SHOCK [None]
